FAERS Safety Report 5956084-2 (Version None)
Quarter: 2008Q4

REPORT INFORMATION
  Report Type: 
  Country: None (occurrence: None)
  Receive Date: 20081118
  Receipt Date: 20081113
  Transmission Date: 20090506
  Serious: Yes (Disabling, Other)
  Sender: FDA-Public Use
  Company Number: US-JNJFOC-20080900122

PATIENT
  Sex: Male
  Weight: 90.72 kg

DRUGS (3)
  1. LEVAQUIN [Suspect]
     Route: 048
  2. LEVAQUIN [Suspect]
     Indication: CHRONIC SINUSITIS
     Route: 048
  3. VITAMIN TAB [Concomitant]
     Route: 065

REACTIONS (2)
  - JOINT DISLOCATION [None]
  - TENDON RUPTURE [None]
